FAERS Safety Report 4371938-9 (Version None)
Quarter: 2004Q2

REPORT INFORMATION
  Report Type: 
  Country: None (occurrence: None)
  Receive Date: 20040601
  Receipt Date: 20030903
  Transmission Date: 20050107
  Serious: Yes (Other)
  Sender: FDA-Public Use
  Company Number: KII-2003-0010083

PATIENT
  Sex: Male

DRUGS (1)
  1. OXYCONTIN [Suspect]
     Indication: CANCER PAIN
     Dosage: 20 MG, Q12, UNKNOWN; 240 MG, UNK

REACTIONS (2)
  - CONDITION AGGRAVATED [None]
  - LUNG CANCER METASTATIC [None]
